FAERS Safety Report 4591444-6 (Version None)
Quarter: 2005Q1

REPORT INFORMATION
  Report Type: 
  Country: None (occurrence: None)
  Receive Date: 20050223
  Receipt Date: 20050223
  Transmission Date: 20050727
  Serious: Yes (Hospitalization)
  Sender: FDA-Public Use
  Company Number: None

PATIENT
  Sex: Female
  Weight: 69.8539 kg

DRUGS (15)
  1. CARBOPLATIN [Suspect]
     Indication: BREAST CANCER
     Dosage: 506MG/IV/ Q 3 WKS
     Route: 042
     Dates: start: 20041117
  2. CARBOPLATIN [Suspect]
     Indication: BREAST CANCER
     Dosage: 506MG/IV/ Q 3 WKS
     Route: 042
     Dates: start: 20041207
  3. CARBOPLATIN [Suspect]
     Indication: BREAST CANCER
     Dosage: 506MG/IV/ Q 3 WKS
     Route: 042
     Dates: start: 20041228
  4. TAXOL [Suspect]
     Indication: BREAST CANCER
     Dosage: 336 MG / IV / Q 3 WKS
     Route: 042
     Dates: start: 20041117
  5. TAXOL [Suspect]
     Indication: BREAST CANCER
     Dosage: 336 MG / IV / Q 3 WKS
     Route: 042
     Dates: start: 20041207
  6. TAXOL [Suspect]
     Indication: BREAST CANCER
     Dosage: 336 MG / IV / Q 3 WKS
     Route: 042
     Dates: start: 20041228
  7. LOPID [Concomitant]
  8. NITROGLYCERIN [Concomitant]
  9. ISOSORBIDE DINITRATE [Concomitant]
  10. METOPROLOL [Concomitant]
  11. INDOCIN [Concomitant]
  12. DIPENTUM [Concomitant]
  13. HYDROCHLOROTHIAZIDE [Concomitant]
  14. ZOCOR [Concomitant]
  15. METFORMIN [Concomitant]

REACTIONS (3)
  - DIALYSIS [None]
  - LOSS OF CONSCIOUSNESS [None]
  - SYNCOPE [None]
